FAERS Safety Report 5346793-0 (Version None)
Quarter: 2007Q2

REPORT INFORMATION
  Report Type: 
  Country: None (occurrence: None)
  Receive Date: 20070501
  Receipt Date: 20070201
  Transmission Date: 20071010
  Serious: No
  Sender: FDA-Public Use
  Company Number: VNL_0394_2007

PATIENT
  Age: 75 Year
  Sex: Male
  Weight: 72.5755 kg

DRUGS (3)
  1. APOKYN [Suspect]
     Indication: PARKINSON'S DISEASE
     Dosage: 0.3 ML ONCE SC
     Route: 058
     Dates: start: 20070201, end: 20070201
  2. SINEMET [Concomitant]
  3. TIGAN [Concomitant]

REACTIONS (2)
  - NAUSEA [None]
  - VOMITING [None]
